FAERS Safety Report 13039715 (Version 1)
Quarter: 2016Q4

REPORT INFORMATION
  Report Type: Spontaneous
  Country: US (occurrence: US)
  Receive Date: 20161218
  Receipt Date: 20161218
  Transmission Date: 20170207
  Serious: Yes (Disabling)
  Sender: FDA-Public Use
  Company Number: None

PATIENT
  Age: 67 Year
  Sex: Female
  Weight: 76.5 kg

DRUGS (3)
  1. AZITHROMYCIN TEVA [Suspect]
     Active Substance: AZITHROMYCIN
     Indication: PNEUMONIA
     Dosage: QUANTITY:7 TABLET(S);OTHER FREQUENCY:2 TABS, THEN 1 QD; ORAL?
     Route: 048
     Dates: start: 20161214, end: 20161218
  2. ASPIRIN. [Concomitant]
     Active Substance: ASPIRIN
  3. ATENOLOL. [Concomitant]
     Active Substance: ATENOLOL

REACTIONS (4)
  - Jaw disorder [None]
  - Breast pain [None]
  - Dyspnoea [None]
  - Vision blurred [None]

NARRATIVE: CASE EVENT DATE: 20161215
